FAERS Safety Report 25974472 (Version 2)
Quarter: 2025Q4

REPORT INFORMATION
  Report Type: Spontaneous
  Country: US (occurrence: US)
  Receive Date: 20251029
  Receipt Date: 20251117
  Transmission Date: 20260119
  Serious: No
  Sender: PHARMING GROUP
  Company Number: US-PHARMING-PHAUS2025001448

PATIENT

DRUGS (2)
  1. RUCONEST [Suspect]
     Active Substance: CONESTAT ALFA
     Indication: Hereditary angioedema
     Dosage: 3495 IU, AS NEEDED
     Route: 042
     Dates: start: 202508
  2. ICATIBANT [Concomitant]
     Active Substance: ICATIBANT ACETATE
     Indication: Product used for unknown indication

REACTIONS (5)
  - Dental operation [Unknown]
  - Gingivectomy [Unknown]
  - Injection site pain [Unknown]
  - Vascular access site complication [Unknown]
  - Product use in unapproved indication [Unknown]

NARRATIVE: CASE EVENT DATE: 20251008
